FAERS Safety Report 5339398-9 (Version None)
Quarter: 2007Q2

REPORT INFORMATION
  Report Type: 
  Country: None (occurrence: None)
  Receive Date: 20070525
  Receipt Date: 20070516
  Transmission Date: 20071010
  Serious: Yes (Hospitalization)
  Sender: FDA-Public Use
  Company Number: 2007AL001997

PATIENT
  Age: 62 Year
  Sex: Male
  Weight: 72 kg

DRUGS (13)
  1. TRAMADOL HCL [Suspect]
     Indication: PAIN
     Dosage: 150 MG
  2. FENTANYL [Concomitant]
  3. REMIFENTANIL [Concomitant]
  4. PIRITRAMIDE [Concomitant]
  5. PROPOFOL [Concomitant]
  6. CISATRACURIUM BESILATE [Concomitant]
  7. AMLODIPINE [Concomitant]
  8. CARVEDILOL [Concomitant]
  9. LORAZEPAM [Concomitant]
  10. AMITRIPTYLINE HCL [Concomitant]
  11. METFORMIN HCL [Concomitant]
  12. ATORVASTATIN [Concomitant]
  13. PARACETAMOL [Concomitant]

REACTIONS (2)
  - ABDOMINAL PAIN UPPER [None]
  - HYPERAESTHESIA [None]
